FAERS Safety Report 5128912-4 (Version None)
Quarter: 2006Q4

REPORT INFORMATION
  Report Type: 
  Country: None (occurrence: None)
  Receive Date: 20061011
  Receipt Date: 20060922
  Transmission Date: 20070319
  Serious: Yes (Hospitalization)
  Sender: FDA-Public Use
  Company Number: US200607001083

PATIENT
  Age: 37 Year
  Sex: Female
  Weight: 67.1 kg

DRUGS (7)
  1. ZYPREXA [Suspect]
     Dosage: SEE IMAGE
     Dates: start: 20041117, end: 20050525
  2. ZYPREXA [Suspect]
     Dosage: SEE IMAGE
     Dates: start: 20041031
  3. ZIPRASIDONE HCL [Concomitant]
  4. MIRTAZAPINE [Concomitant]
  5. PAROXETINE [Concomitant]
  6. VENLAFAXINE HCL [Concomitant]
  7. ATENOLOL [Concomitant]

REACTIONS (5)
  - BLOOD CHOLESTEROL ABNORMAL [None]
  - BLOOD TRIGLYCERIDES INCREASED [None]
  - DIABETES MELLITUS [None]
  - OVERWEIGHT [None]
  - PULMONARY EMBOLISM [None]
